FAERS Safety Report 8161870 (Version 3)
Quarter: 2014Q4

REPORT INFORMATION
  Report Type: Spontaneous
  Country: US (occurrence: US)
  Receive Date: 20110929
  Receipt Date: 20141031
  Transmission Date: 20150529
  Serious: Yes (Hospitalization, Other)
  Sender: FDA-Public Use
  Company Number: US-GLAXOSMITHKLINE-B0750958A

PATIENT
  Sex: Male

DRUGS (2)
  1. AVANDIA [Suspect]
     Active Substance: ROSIGLITAZONE MALEATE
     Indication: DIABETES MELLITUS
     Route: 048
     Dates: start: 2003, end: 200803
  2. AVANDAMET [Suspect]
     Active Substance: METFORMIN HYDROCHLORIDE\ROSIGLITAZONE MALEATE
     Indication: DIABETES MELLITUS
     Route: 048
     Dates: start: 2003, end: 200803

REACTIONS (6)
  - Cardiac pacemaker insertion [Unknown]
  - Myocardial infarction [Unknown]
  - Ischaemic cardiomyopathy [Not Recovered/Not Resolved]
  - Atrioventricular block complete [Unknown]
  - Coronary artery disease [Unknown]
  - Cardiovascular disorder [Unknown]
